FAERS Safety Report 21334380 (Version 1)
Quarter: 2022Q3

REPORT INFORMATION
  Report Type: Other
  Country: None (occurrence: US)
  Receive Date: 20220914
  Receipt Date: 20220914
  Transmission Date: 20221027
  Serious: Yes (Death, Life-Threatening)
  Sender: FDA-Public Use
  Company Number: US-Nostrum Laboratories, Inc.-2132848

PATIENT
  Age: 45 Year
  Sex: Male

DRUGS (3)
  1. HYDROCODONE BITARTRATE AND IBUPROFEN [Suspect]
     Active Substance: HYDROCODONE BITARTRATE\IBUPROFEN
     Indication: Drug abuse
     Route: 048
  2. AMPHETAMINE SULFATE [Concomitant]
     Active Substance: AMPHETAMINE SULFATE
     Route: 048
  3. ALCOHOL [Interacting]
     Active Substance: ALCOHOL
     Route: 048

REACTIONS (1)
  - Accidental overdose [Fatal]
